FAERS Safety Report 7949722-6 (Version None)
Quarter: 2011Q4

REPORT INFORMATION
  Report Type: 
  Country: None (occurrence: None)
  Receive Date: 20111130
  Receipt Date: 20111118
  Transmission Date: 20120403
  Serious: Yes (Death, Hospitalization)
  Sender: FDA-Public Use
  Company Number: PHHY2011ID104093

PATIENT
  Age: 35 Year
  Sex: Male

DRUGS (1)
  1. GLEEVEC [Suspect]
     Dosage: 600 MG, DAILY

REACTIONS (2)
  - DEATH [None]
  - BLAST CRISIS IN MYELOGENOUS LEUKAEMIA [None]
